FAERS Safety Report 4322320-1 (Version None)
Quarter: 2004Q1

REPORT INFORMATION
  Report Type: 
  Country: None (occurrence: None)
  Receive Date: 20040319
  Receipt Date: 20040309
  Transmission Date: 20041129
  Serious: Yes (Hospitalization)
  Sender: FDA-Public Use
  Company Number: 2004-02-0468

PATIENT
  Age: 45 Year
  Sex: Male

DRUGS (2)
  1. INTRON A [Suspect]
     Indication: HEPATITIS C
     Dosage: 10 MU INTRAMUSCULAR; 6 MU BIW INTRAMUSCULAR
     Route: 030
  2. REBETOL [Suspect]
     Indication: HEPATITIS C
     Dosage: 800 MG QD ORAL
     Route: 048

REACTIONS (5)
  - ABDOMINAL PAIN [None]
  - DEPRESSION [None]
  - HYPOAESTHESIA [None]
  - PERIPHERAL EMBOLISM [None]
  - PULSE ABSENT [None]
